FAERS Safety Report 8899235 (Version 1)
Quarter: 2012Q4

REPORT INFORMATION
  Report Type: 
  Country: US (occurrence: US)
  Receive Date: 20121108
  Receipt Date: 20121108
  Transmission Date: 20130627
  Serious: No
  Sender: FDA-Public Use
  Company Number: US-AMGEN-USASP2012027552

PATIENT
  Age: 75 Year
  Sex: Female
  Weight: 56.69 kg

DRUGS (9)
  1. ENBREL [Suspect]
     Indication: PRODUCT USED FOR UNKNOWN INDICATION
     Dosage: 50 mg, qwk
  2. PROTONIX [Concomitant]
     Dosage: 20 mg, UNK
  3. METHOTREXATE [Concomitant]
     Dosage: 2.5 mg, UNK
  4. LYRICA [Concomitant]
     Dosage: 225 mg, UNK
  5. COZAAR [Concomitant]
     Dosage: 25 mg, UNK
  6. VESICARE [Concomitant]
     Dosage: 10 mg, UNK
  7. FOLIC ACID [Concomitant]
     Dosage: 1 mg, UNK
  8. ASPIRIN [Concomitant]
     Dosage: 81 mg, UNK
  9. ZANTAC [Concomitant]

REACTIONS (1)
  - Injection site pain [Unknown]
